APPROVED DRUG PRODUCT: METHYLPHENIDATE HYDROCHLORIDE
Active Ingredient: METHYLPHENIDATE HYDROCHLORIDE
Strength: 5MG
Dosage Form/Route: TABLET;ORAL
Application: A040321 | Product #001
Applicant: ACTAVIS ELIZABETH LLC
Approved: Feb 5, 2002 | RLD: No | RS: No | Type: DISCN